FAERS Safety Report 6314516-4 (Version None)
Quarter: 2009Q3

REPORT INFORMATION
  Report Type: 
  Country: None (occurrence: None)
  Receive Date: 20090818
  Receipt Date: 20090818
  Transmission Date: 20100115
  Serious: Yes (Other)
  Sender: FDA-Public Use
  Company Number: None

PATIENT
  Age: 63 Year
  Sex: Female
  Weight: 90.7194 kg

DRUGS (1)
  1. HEAD ON TOPICAL HEADACHE PRODUCT [Suspect]

REACTIONS (5)
  - ACCIDENTAL EXPOSURE [None]
  - BURNS SECOND DEGREE [None]
  - EYE IRRITATION [None]
  - EYE PAIN [None]
  - PRODUCT QUALITY ISSUE [None]
